FAERS Safety Report 4972572-X (Version None)
Quarter: 2006Q1

REPORT INFORMATION
  Report Type: 
  Country: None (occurrence: None)
  Receive Date: 20060216
  Receipt Date: 20051024
  Transmission Date: 20060701
  Serious: No
  Sender: FDA-Public Use
  Company Number: TPA2005A01334

PATIENT
  Age: 73 Year
  Sex: Male
  Weight: 69.8539 kg

DRUGS (5)
  1. ROZEREM [Suspect]
     Indication: INSOMNIA
     Dosage: 8 MG, QHS, PER ORAL
     Route: 048
     Dates: start: 20051021
  2. HCTZ (HYDROCHLOROTHIAZIDE) [Concomitant]
  3. ATENOLOL [Concomitant]
  4. LOVASTATIN [Concomitant]
  5. ADALAT [Concomitant]

REACTIONS (2)
  - DIZZINESS [None]
  - INSOMNIA [None]
